FAERS Safety Report 13112840 (Version 1)
Quarter: 2017Q1

REPORT INFORMATION
  Report Type: Spontaneous
  Country: US (occurrence: US)
  Receive Date: 20170113
  Receipt Date: 20170113
  Transmission Date: 20170428
  Serious: No
  Sender: FDA-Public Use
  Company Number: US-009507513-1701USA004205

PATIENT
  Sex: Female

DRUGS (6)
  1. JANUVIA [Suspect]
     Active Substance: SITAGLIPTIN PHOSPHATE
     Route: 048
  2. METFORMIN [Suspect]
     Active Substance: METFORMIN HYDROCHLORIDE
  3. PIOGLITAZONE. [Suspect]
     Active Substance: PIOGLITAZONE
  4. BYETTA [Suspect]
     Active Substance: EXENATIDE
  5. GLYBURIDE. [Suspect]
     Active Substance: GLYBURIDE
  6. LANTUS [Suspect]
     Active Substance: INSULIN GLARGINE

REACTIONS (1)
  - Glycosylated haemoglobin increased [Unknown]
